FAERS Safety Report 24468003 (Version 1)
Quarter: 2024Q4

REPORT INFORMATION
  Report Type: Spontaneous
  Country: IN (occurrence: IN)
  Receive Date: 20241018
  Receipt Date: 20241018
  Transmission Date: 20250115
  Serious: Yes (Other)
  Sender: BIOCON
  Company Number: IN-MIMS-BCONMC-8169

PATIENT

DRUGS (5)
  1. INSULIN GLARGINE [Suspect]
     Active Substance: INSULIN GLARGINE
     Indication: Diabetes mellitus
     Dosage: 15 UNITS/ML, QD
     Route: 058
  2. INSULIN GLARGINE [Suspect]
     Active Substance: INSULIN GLARGINE
     Dosage: 26 UNITS/ML, QD
     Route: 058
  3. AMARYL [Concomitant]
     Active Substance: GLIMEPIRIDE
     Indication: Diabetes mellitus
     Dosage: UNK
     Route: 048
  4. JUSTOZA [Concomitant]
     Indication: Diabetes mellitus
     Dosage: UNK
     Route: 048
  5. VILDAGLIPTIN [Concomitant]
     Active Substance: VILDAGLIPTIN
     Indication: Diabetes mellitus
     Dosage: UNK
     Route: 048

REACTIONS (5)
  - Cardiac operation [Unknown]
  - Abscess limb [Unknown]
  - Blood glucose increased [Unknown]
  - Product dose omission issue [Unknown]
  - Drug ineffective [Unknown]
